FAERS Safety Report 10073915 (Version 3)
Quarter: 2014Q2

REPORT INFORMATION
  Report Type: Spontaneous
  Country: CA (occurrence: CA)
  Receive Date: 20140411
  Receipt Date: 20140418
  Transmission Date: 20141212
  Serious: Yes (Other)
  Sender: FDA-Public Use
  Company Number: CA-ABBVIE-13X-028-1071877-00

PATIENT
  Age: 10 Year
  Sex: Male

DRUGS (8)
  1. VALPROIC ACID [Suspect]
     Indication: PARTIAL SEIZURES
  2. PHENOBARBITAL [Suspect]
     Indication: PARTIAL SEIZURES
  3. PENTOBARBITAL [Suspect]
     Indication: PARTIAL SEIZURES
     Route: 042
  4. LEVETIRACETAM [Suspect]
     Indication: PARTIAL SEIZURES
     Route: 042
  5. LORAZEPAM [Concomitant]
     Indication: PARTIAL SEIZURES
     Route: 042
  6. ACYCLOVIR [Concomitant]
     Indication: PRODUCT USED FOR UNKNOWN INDICATION
  7. CEFTRIAXONE [Concomitant]
     Indication: PRODUCT USED FOR UNKNOWN INDICATION
  8. VANCOMYCIN [Concomitant]
     Indication: PRODUCT USED FOR UNKNOWN INDICATION

REACTIONS (3)
  - Rash maculo-papular [Unknown]
  - Eosinophilia [Unknown]
  - Convulsion [Unknown]
